FAERS Safety Report 13817152 (Version 2)
Quarter: 2017Q3

REPORT INFORMATION
  Report Type: Report from Study
  Country: US (occurrence: US)
  Receive Date: 20170731
  Receipt Date: 20170902
  Transmission Date: 20171127
  Serious: Yes (Hospitalization)
  Sender: FDA-Public Use
  Company Number: US-AMGEN-USACT2017113088

PATIENT
  Age: 71 Year
  Sex: Female
  Weight: 60.2 kg

DRUGS (1)
  1. ROMIPLOSTIM [Suspect]
     Active Substance: ROMIPLOSTIM
     Indication: THROMBOCYTOPENIA
     Dosage: 225 MUG, QWK
     Route: 058
     Dates: start: 20170119

REACTIONS (7)
  - Hyponatraemia [Unknown]
  - Neutropenia [Unknown]
  - Nausea [Unknown]
  - Chills [Unknown]
  - Hyperhidrosis [Unknown]
  - Vomiting [Recovered/Resolved]
  - Abdominal pain upper [Recovered/Resolved]

NARRATIVE: CASE EVENT DATE: 20170724
